FAERS Safety Report 8160801-3 (Version None)
Quarter: 2012Q1

REPORT INFORMATION
  Report Type: 
  Country: None (occurrence: None)
  Receive Date: 20120223
  Receipt Date: 20120216
  Transmission Date: 20120608
  Serious: Yes (Other)
  Sender: FDA-Public Use
  Company Number: PHHY2012FR013796

PATIENT
  Sex: Female

DRUGS (5)
  1. ZOMETA [Suspect]
     Dosage: 1 DF, QMO
     Dates: start: 20110901, end: 20111101
  2. FEMARA [Suspect]
     Indication: BREAST CANCER METASTATIC
     Dosage: 1 DF, DAILY
     Route: 048
     Dates: start: 20100301
  3. ZOMETA [Suspect]
     Dosage: 1 DF, QMO
     Dates: start: 20111101
  4. ZOMETA [Suspect]
     Dosage: 1 DF, QMO
     Dates: start: 20110401
  5. ZOMETA [Suspect]
     Indication: METASTASES TO BONE
     Dosage: 1 DF, QMO
     Dates: start: 20100301, end: 20110401

REACTIONS (3)
  - TOOTH INFECTION [None]
  - OSTEONECROSIS OF JAW [None]
  - IMPAIRED HEALING [None]
